FAERS Safety Report 4695992-X (Version None)
Quarter: 2005Q2

REPORT INFORMATION
  Report Type: 
  Country: None (occurrence: None)
  Receive Date: 20050621
  Receipt Date: 20050610
  Transmission Date: 20051028
  Serious: Yes (Other)
  Sender: FDA-Public Use
  Company Number: PHBS2005CA08527

PATIENT
  Age: 78 Year
  Sex: Male

DRUGS (1)
  1. PILOCARPINE (NVO) [Suspect]
     Indication: ANGLE CLOSURE GLAUCOMA
     Dosage: UNK, QID

REACTIONS (8)
  - ANXIETY [None]
  - CONFUSIONAL STATE [None]
  - DELIRIUM [None]
  - DELUSIONAL DISORDER, PERSECUTORY TYPE [None]
  - DEREALISATION [None]
  - DISORIENTATION [None]
  - HALLUCINATION, VISUAL [None]
  - SLEEP DISORDER [None]
